FAERS Safety Report 4451974-4 (Version None)
Quarter: 2004Q3

REPORT INFORMATION
  Report Type: 
  Country: None (occurrence: None)
  Receive Date: 20040915
  Receipt Date: 20040915
  Transmission Date: 20050211
  Serious: Yes (Hospitalization)
  Sender: FDA-Public Use
  Company Number: None

PATIENT
  Age: 87 Year
  Sex: Female
  Weight: 92.9874 kg

DRUGS (10)
  1. ENOXAPARIN SODIUM [Suspect]
     Indication: ANTICOAGULANT THERAPY
     Dosage: 80 MG SQ BID
     Route: 058
     Dates: start: 20040430, end: 20040502
  2. WARFARIN SODIUM [Suspect]
     Indication: ANTICOAGULANT THERAPY
     Dosage: 5MG PO QHS
     Route: 048
  3. LANOXIN [Concomitant]
  4. LOPRESSOR [Concomitant]
  5. COUMADIN [Concomitant]
  6. LASIX [Concomitant]
  7. AVELOX [Concomitant]
  8. AVALIDE [Concomitant]
  9. ENOXAPARIN SODIUM [Concomitant]
  10. ASPIRIN [Concomitant]

REACTIONS (8)
  - CARDIAC FAILURE CONGESTIVE [None]
  - HAEMATOCHEZIA [None]
  - HAEMATOCRIT DECREASED [None]
  - HYPOTENSION [None]
  - HYPOXIA [None]
  - INTERNATIONAL NORMALISED RATIO DECREASED [None]
  - PULMONARY OEDEMA [None]
  - RECTAL ULCER HAEMORRHAGE [None]
